FAERS Safety Report 7741719-4 (Version None)
Quarter: 2011Q3

REPORT INFORMATION
  Report Type: 
  Country: None (occurrence: None)
  Receive Date: 20110912
  Receipt Date: 20110907
  Transmission Date: 20111222
  Serious: Yes (Hospitalization)
  Sender: FDA-Public Use
  Company Number: US-BIOGENIDEC-2011BI033929

PATIENT
  Sex: Female

DRUGS (1)
  1. TYSABRI [Suspect]
     Indication: MULTIPLE SCLEROSIS
     Route: 042
     Dates: start: 20100812, end: 20110411

REACTIONS (6)
  - VOMITING [None]
  - APHAGIA [None]
  - INSOMNIA [None]
  - GAIT DISTURBANCE [None]
  - NAUSEA [None]
  - ULCER HAEMORRHAGE [None]
